FAERS Safety Report 4463853-7 (Version None)
Quarter: 2004Q3

REPORT INFORMATION
  Report Type: 
  Country: None (occurrence: None)
  Receive Date: 20040929
  Receipt Date: 20040915
  Transmission Date: 20050211
  Serious: Yes (Death)
  Sender: FDA-Public Use
  Company Number: WAES 0409USA01662

PATIENT
  Age: 54 Year
  Sex: Male

DRUGS (1)
  1. COZAAR [Suspect]
     Indication: HYPERTENSION
     Dosage: 50 MG/DAILY PO
     Route: 048
     Dates: start: 20010705, end: 20040328

REACTIONS (1)
  - CARDIAC FAILURE ACUTE [None]
